FAERS Safety Report 15172088 (Version 1)
Quarter: 2018Q3

REPORT INFORMATION
  Report Type: Spontaneous
  Country: US (occurrence: US)
  Receive Date: 20180622
  Receipt Date: 20180622
  Transmission Date: 20181010
  Serious: Yes (Hospitalization)
  Sender: FDA-Public Use
  Company Number: None

PATIENT
  Age: 70 Year
  Sex: Male
  Weight: 108 kg

DRUGS (1)
  1. NIVOLUMAB [Suspect]
     Active Substance: NIVOLUMAB
     Indication: METASTATIC RENAL CELL CARCINOMA
     Route: 043
     Dates: start: 20160414, end: 20180416

REACTIONS (5)
  - Thrombocytopenia [None]
  - Acute kidney injury [None]
  - Haemodialysis [None]
  - Fatigue [None]
  - Enteritis [None]

NARRATIVE: CASE EVENT DATE: 20180615
